FAERS Safety Report 4300636-2 (Version None)
Quarter: 2004Q1

REPORT INFORMATION
  Report Type: 
  Country: None (occurrence: None)
  Receive Date: 20040218
  Receipt Date: 20040211
  Transmission Date: 20041129
  Serious: Yes (Life-Threatening, Hospitalization)
  Sender: FDA-Public Use
  Company Number: 2004196601CH

PATIENT
  Age: 31 Year
  Sex: Female

DRUGS (9)
  1. LUVOX [Suspect]
     Indication: ILL-DEFINED DISORDER
     Dosage: 800 MG, SINGLE, ORAL
     Route: 048
     Dates: start: 20040102, end: 20040102
  2. LITHIUM CARBONATE [Suspect]
     Indication: ILL-DEFINED DISORDER
     Dosage: 4000 MG, SINGLE, ORAL
     Route: 048
     Dates: start: 20040102, end: 20040102
  3. TRAMADOL HCL [Suspect]
     Indication: ILL-DEFINED DISORDER
     Dosage: 4500 MG, SINGLE, ORAL
     Route: 048
     Dates: start: 20040102, end: 20040102
  4. ENTUMIN (CLOTIAPINE) [Suspect]
     Indication: ILL-DEFINED DISORDER
     Dosage: 4000 MG, SINGLE, ORAL
     Route: 048
     Dates: start: 20040102, end: 20040102
  5. PONSTAN (MEFENAMIC ACID) [Suspect]
     Indication: ILL-DEFINED DISORDER
     Dosage: 18000 MG, SINGLE, ORAL
     Route: 048
     Dates: start: 20040102, end: 20040102
  6. INDERAL [Suspect]
     Indication: ILL-DEFINED DISORDER
     Dosage: 300 MG, SINGLE, ORAL
     Route: 048
     Dates: start: 20040102, end: 20040102
  7. CLORAZEPATE DIPOTASSIUM [Suspect]
     Indication: ILL-DEFINED DISORDER
     Dosage: 250 MG, SINGLE, ORAL
     Route: 048
     Dates: start: 20040102, end: 20040102
  8. DETRUSITOL [Suspect]
     Indication: ILL-DEFINED DISORDER
     Dosage: 14 MG, SINGLE, ORAL
     Route: 048
     Dates: start: 20040102, end: 20040102
  9. FLURAZEPAM [Suspect]
     Indication: ILL-DEFINED DISORDER
     Dosage: 1800 MG, SINGLE, ORAL
     Route: 048
     Dates: start: 20040102, end: 20040102

REACTIONS (25)
  - ANAEMIA [None]
  - BRADYCARDIA [None]
  - COGWHEEL RIGIDITY [None]
  - COMA [None]
  - DIARRHOEA [None]
  - GASTRIC ULCER [None]
  - GASTRITIS HAEMORRHAGIC [None]
  - HAEMATEMESIS [None]
  - HAEMODIALYSIS [None]
  - HYPERREFLEXIA [None]
  - HYPOTENSION [None]
  - HYPOXIA [None]
  - METABOLIC ACIDOSIS [None]
  - MIOSIS [None]
  - MULTIPLE DRUG OVERDOSE [None]
  - MYOCLONUS [None]
  - OEDEMA PERIPHERAL [None]
  - PETECHIAE [None]
  - PITTING OEDEMA [None]
  - RENAL FAILURE ACUTE [None]
  - SEROTONIN SYNDROME [None]
  - SUICIDE ATTEMPT [None]
  - TACHYCARDIA [None]
  - TACHYPNOEA [None]
  - THROMBOCYTOPENIA [None]
